FAERS Safety Report 12110796 (Version 1)
Quarter: 2016Q1

REPORT INFORMATION
  Report Type: Spontaneous
  Country: US (occurrence: US)
  Receive Date: 20160224
  Receipt Date: 20160224
  Transmission Date: 20160526
  Serious: No
  Sender: FDA-Public Use
  Company Number: US-JAZZ-2015-US-003632

PATIENT
  Sex: Female

DRUGS (8)
  1. DILAUDID [Suspect]
     Active Substance: HYDROMORPHONE HYDROCHLORIDE
     Indication: POST LAMINECTOMY SYNDROME
  2. PRIALT [Suspect]
     Active Substance: ZICONOTIDE ACETATE
     Indication: PAIN
     Dosage: UNK ?G, QH
     Route: 037
  3. PRIALT [Suspect]
     Active Substance: ZICONOTIDE ACETATE
     Indication: POST LAMINECTOMY SYNDROME
  4. MORPHINE SULFATE. [Suspect]
     Active Substance: MORPHINE SULFATE
     Indication: PAIN
     Dosage: UNK MG, QH
     Route: 037
  5. METHADONE HCL [Suspect]
     Active Substance: METHADONE HYDROCHLORIDE
     Indication: PAIN
     Dosage: UNK, QH
     Route: 037
  6. DILAUDID [Suspect]
     Active Substance: HYDROMORPHONE HYDROCHLORIDE
     Indication: PAIN
     Dosage: UNK MG, QH
     Route: 037
  7. MORPHINE SULFATE. [Suspect]
     Active Substance: MORPHINE SULFATE
     Indication: POST LAMINECTOMY SYNDROME
  8. METHADONE HCL [Suspect]
     Active Substance: METHADONE HYDROCHLORIDE
     Indication: POST LAMINECTOMY SYNDROME

REACTIONS (1)
  - Drug ineffective [Unknown]
